FAERS Safety Report 16192176 (Version 1)
Quarter: 2019Q2

REPORT INFORMATION
  Report Type: Spontaneous
  Country: FR (occurrence: FR)
  Receive Date: 20190412
  Receipt Date: 20190412
  Transmission Date: 20190711
  Serious: Yes (Other)
  Sender: FDA-Public Use
  Company Number: PHHY2019FR084467

PATIENT
  Age: 70 Year
  Sex: Female

DRUGS (2)
  1. OPATANOL [Suspect]
     Active Substance: OLOPATADINE
     Indication: EYE ALLERGY
     Dosage: 1 GTT, UNK
     Route: 065
  2. OPATANOL [Suspect]
     Active Substance: OLOPATADINE
     Indication: EYE IRRITATION

REACTIONS (1)
  - Uveitis [Unknown]
